FAERS Safety Report 9154090 (Version 3)
Quarter: 2013Q1

REPORT INFORMATION
  Report Type: Spontaneous
  Country: PT (occurrence: None)
  Receive Date: 20130211
  Receipt Date: 20130313
  Transmission Date: 20140127
  Serious: Yes (Hospitalization)
  Sender: FDA-Public Use
  Company Number: 1560964

PATIENT
  Age: 83 Year
  Sex: Male
  Weight: 70 kg

DRUGS (2)
  1. ISOPROTERENOL [Suspect]
     Indication: PRODUCT USED FOR UNKNOWN INDICATION
     Dates: start: 20130102
  2. CEFAZOLIN [Concomitant]

REACTIONS (4)
  - Pyrexia [None]
  - Malaise [None]
  - Expired drug administered [None]
  - Chills [None]
